FAERS Safety Report 9325765 (Version 1)
Quarter: 2013Q2

REPORT INFORMATION
  Report Type: Spontaneous
  Country: US (occurrence: None)
  Receive Date: 20130603
  Receipt Date: 20130603
  Transmission Date: 20140414
  Serious: No
  Sender: FDA-Public Use
  Company Number: None

PATIENT
  Sex: Female
  Weight: 57.15 kg

DRUGS (6)
  1. BUPROPION HYDROCHLORIDE [Suspect]
     Indication: ANXIETY
     Route: 048
     Dates: start: 20121019, end: 20121112
  2. VENLAFAXINE [Suspect]
     Indication: DEPRESSION
     Route: 048
     Dates: start: 20121112, end: 20130104
  3. VENLAFAXINE [Suspect]
     Indication: INSOMNIA
     Route: 048
     Dates: start: 20121112, end: 20130104
  4. SYNTHROID [Concomitant]
  5. CYTOMEL [Concomitant]
  6. COZAAR [Concomitant]

REACTIONS (1)
  - Nausea [None]
